FAERS Safety Report 7826597-7 (Version None)
Quarter: 2011Q4

REPORT INFORMATION
  Report Type: 
  Country: None (occurrence: None)
  Receive Date: 20111020
  Receipt Date: 20111011
  Transmission Date: 20120403
  Serious: Yes (Hospitalization)
  Sender: FDA-Public Use
  Company Number: US-JNJFOC-20110709669

PATIENT
  Sex: Female
  Weight: 54 kg

DRUGS (23)
  1. COLACE [Concomitant]
     Route: 065
  2. CELEXA [Concomitant]
     Route: 065
  3. PRILOSEC [Concomitant]
     Route: 065
  4. LIDODERM [Concomitant]
     Route: 065
  5. ASPIRIN [Concomitant]
     Route: 065
  6. HEPARIN [Concomitant]
     Route: 065
  7. KEPPRA [Concomitant]
     Route: 065
  8. SUPRAX [Concomitant]
     Route: 065
  9. ROCEPHIN [Concomitant]
     Route: 065
  10. ZOFRAN [Concomitant]
     Route: 065
  11. FOSAMAX [Concomitant]
     Route: 065
  12. POTASSIUM CHLORIDE [Concomitant]
     Route: 065
  13. SYNTHROID [Concomitant]
     Route: 065
  14. LYRICA [Concomitant]
     Route: 065
  15. NITROFURANTOIN [Concomitant]
     Route: 065
  16. MIDODRINE HYDROCHLORIDE [Concomitant]
     Route: 065
  17. TYLENOL-500 [Concomitant]
     Route: 065
  18. DILANTIN [Concomitant]
     Route: 065
  19. DURAGESIC-100 [Suspect]
     Indication: PAIN
     Route: 062
     Dates: start: 20110714, end: 20110722
  20. FOLIC ACID [Concomitant]
     Route: 065
  21. LIDODERM [Concomitant]
     Route: 065
  22. MULTI-VITAMINS [Concomitant]
     Route: 065
  23. LACOSAMIDE [Concomitant]
     Route: 065

REACTIONS (2)
  - FALL [None]
  - INTENTIONAL DRUG MISUSE [None]
